FAERS Safety Report 7334550-5 (Version None)
Quarter: 2011Q1

REPORT INFORMATION
  Report Type: 
  Country: None (occurrence: None)
  Receive Date: 20110307
  Receipt Date: 20110222
  Transmission Date: 20110831
  Serious: Yes (Death)
  Sender: FDA-Public Use
  Company Number: PK-SANOFI-AVENTIS-2011SA011351

PATIENT
  Age: 6 Month
  Sex: Male
  Weight: 4.7 kg

DRUGS (4)
  1. CLAFORAN [Suspect]
     Indication: SEPSIS NEONATAL
     Route: 042
     Dates: start: 20110205, end: 20110205
  2. CEFTAZIDIME [Concomitant]
     Indication: SEPSIS NEONATAL
     Dates: start: 20110202
  3. CEFTAZIDIME [Concomitant]
     Dates: start: 20110202
  4. PHENOBARBITONE [Concomitant]
     Route: 042
     Dates: start: 20110204, end: 20110205

REACTIONS (2)
  - DEATH [None]
  - PRODUCT COUNTERFEIT [None]
